FAERS Safety Report 10508869 (Version 3)
Quarter: 2014Q4

REPORT INFORMATION
  Report Type: Report from Study
  Country: FR (occurrence: FR)
  Receive Date: 20141009
  Receipt Date: 20141121
  Transmission Date: 20150528
  Serious: Yes (Hospitalization, Other)
  Sender: FDA-Public Use
  Company Number: FR-ELI_LILLY_AND_COMPANY-FR201409010588

PATIENT
  Age: 41 Year
  Sex: Male

DRUGS (1)
  1. OLANZAPINE LONG-ACTING IM [Suspect]
     Active Substance: OLANZAPINE PAMOATE
     Indication: SCHIZOPHRENIA
     Dosage: 405 MG, MONTHLY (1/M)
     Route: 030
     Dates: start: 20111222, end: 20140927

REACTIONS (8)
  - Dyskinesia [Recovered/Resolved]
  - Oxygen saturation decreased [Recovered/Resolved]
  - Confusional state [Recovered/Resolved]
  - Weight increased [Unknown]
  - Somnolence [Recovered/Resolved]
  - Miosis [Recovered/Resolved]
  - Agitation [Recovered/Resolved]
  - Coma [Recovered/Resolved]

NARRATIVE: CASE EVENT DATE: 2012
